FAERS Safety Report 4862786-1 (Version None)
Quarter: 2005Q4

REPORT INFORMATION
  Report Type: 
  Country: None (occurrence: None)
  Receive Date: 20051219
  Receipt Date: 20051205
  Transmission Date: 20060501
  Serious: Yes (Other)
  Sender: FDA-Public Use
  Company Number: 2005164904

PATIENT
  Age: 60 Year
  Sex: Male
  Weight: 83.0083 kg

DRUGS (1)
  1. VIAGRA [Suspect]
     Indication: ERECTILE DYSFUNCTION
     Dosage: 50 MG (50 MG, AS NECESSARY), ORAL
     Route: 048
     Dates: start: 20030601, end: 20050101

REACTIONS (4)
  - ANXIETY [None]
  - BLINDNESS UNILATERAL [None]
  - MACULAR DEGENERATION [None]
  - RETINAL TEAR [None]
